FAERS Safety Report 25351541 (Version 1)
Quarter: 2025Q2

REPORT INFORMATION
  Report Type: Spontaneous
  Country: US (occurrence: US)
  Receive Date: 20250523
  Receipt Date: 20250523
  Transmission Date: 20250717
  Serious: Yes (Other)
  Sender: UCB
  Company Number: US-UCBSA-2025029819

PATIENT
  Sex: Female

DRUGS (5)
  1. ZILBRYSQ [Suspect]
     Active Substance: ZILUCOPLAN
     Indication: Product used for unknown indication
  2. ZILBRYSQ [Suspect]
     Active Substance: ZILUCOPLAN
     Dates: start: 20250515
  3. REMICADE [Concomitant]
     Active Substance: INFLIXIMAB
     Indication: Product used for unknown indication
  4. VYVGART [EFGARTIGIMOD ALFA] [Concomitant]
     Indication: Product used for unknown indication
  5. IMMUNE GLOBULIN NOS [Concomitant]
     Active Substance: IMMUNE GLOBULIN NOS
     Indication: Product used for unknown indication

REACTIONS (1)
  - Myasthenia gravis [Unknown]
